FAERS Safety Report 22166731 (Version 1)
Quarter: 2023Q2

REPORT INFORMATION
  Report Type: Report from Study
  Country: TH (occurrence: None)
  Receive Date: 20230403
  Receipt Date: 20230403
  Transmission Date: 20230721
  Serious: Yes (Death)
  Sender: FDA-Public Use
  Company Number: 2023A075546

PATIENT
  Sex: Male

DRUGS (2)
  1. IRESSA [Suspect]
     Active Substance: GEFITINIB
     Indication: Non-small cell lung cancer
     Dosage: 250.0MG UNKNOWN
     Route: 048
     Dates: start: 20180504, end: 20221030
  2. IRESSA [Suspect]
     Active Substance: GEFITINIB
     Indication: EGFR gene mutation
     Dosage: 250.0MG UNKNOWN
     Route: 048
     Dates: start: 20180504, end: 20221030

REACTIONS (1)
  - Death [Fatal]
